FAERS Safety Report 23759582 (Version 2)
Quarter: 2024Q3

REPORT INFORMATION
  Report Type: Spontaneous
  Country: US (occurrence: US)
  Receive Date: 20240418
  Receipt Date: 20240708
  Transmission Date: 20241016
  Serious: No
  Sender: BAUSCH AND LOMB
  Company Number: US-BAUSCHBL-2024BNL025454

PATIENT
  Age: 76 Year
  Sex: Female

DRUGS (1)
  1. DORZOLAMIDE HYDROCHLORIDE\TIMOLOL MALEATE [Suspect]
     Active Substance: DORZOLAMIDE HYDROCHLORIDE\TIMOLOL MALEATE
     Indication: Product used for unknown indication
     Route: 065

REACTIONS (6)
  - Eyelid margin crusting [Unknown]
  - Product deposit [Unknown]
  - Product closure removal difficult [Unknown]
  - Product quality issue [Unknown]
  - Liquid product physical issue [Unknown]
  - Product delivery mechanism issue [Unknown]
